FAERS Safety Report 11646015 (Version 1)
Quarter: 2015Q4

REPORT INFORMATION
  Report Type: Spontaneous
  Country: US (occurrence: US)
  Receive Date: 20151020
  Receipt Date: 20151020
  Transmission Date: 20160304
  Serious: No
  Sender: FDA-Public Use
  Company Number: US-ROCHE-1620505

PATIENT
  Sex: Female
  Weight: 83.99 kg

DRUGS (1)
  1. ESBRIET [Suspect]
     Active Substance: PIRFENIDONE
     Indication: IDIOPATHIC PULMONARY FIBROSIS
     Dosage: 534 MG AM, 801 MG AFTERNOON AND PM; TOTAL 2136 MG
     Route: 048
     Dates: start: 20150130

REACTIONS (2)
  - Food intolerance [Unknown]
  - Malaise [Unknown]
